FAERS Safety Report 16598543 (Version 1)
Quarter: 2019Q3

REPORT INFORMATION
  Report Type: Spontaneous
  Country: JP (occurrence: JP)
  Receive Date: 20190719
  Receipt Date: 20190719
  Transmission Date: 20191004
  Serious: Yes (Other)
  Sender: FDA-Public Use
  Company Number: JP-PFIZER INC-2019295509

PATIENT
  Age: 8 Decade
  Sex: Male

DRUGS (1)
  1. SELARA 50MG [Suspect]
     Active Substance: EPLERENONE
     Dosage: UNK
     Route: 048
     Dates: end: 20190710

REACTIONS (1)
  - Hyponatraemia [Unknown]
